FAERS Safety Report 7091414-2 (Version None)
Quarter: 2010Q4

REPORT INFORMATION
  Report Type: 
  Country: None (occurrence: None)
  Receive Date: 20101109
  Receipt Date: 20101029
  Transmission Date: 20110411
  Serious: Yes (Hospitalization)
  Sender: FDA-Public Use
  Company Number: B0681875A

PATIENT
  Sex: Female

DRUGS (7)
  1. ALKERAN [Suspect]
     Indication: MYELOPROLIFERATIVE DISORDER
     Dosage: 5MGML PER DAY
     Route: 042
     Dates: start: 20100909, end: 20100912
  2. DEXAMETHASONE [Suspect]
     Indication: MYELOPROLIFERATIVE DISORDER
     Route: 042
     Dates: start: 20100909, end: 20100912
  3. GABAPENTIN [Concomitant]
     Indication: EPILEPSY
     Dosage: 800MG THREE TIMES PER DAY
     Route: 065
  4. LAROXYL (DROPS) [Concomitant]
     Route: 065
  5. OMEPRAZOLE [Concomitant]
     Dosage: 20MG SEE DOSAGE TEXT
     Route: 065
  6. IXPRIM [Concomitant]
     Dosage: 2UNIT THREE TIMES PER DAY
     Route: 065
  7. MOTILIUM [Concomitant]
     Dosage: 1UNIT THREE TIMES PER DAY
     Route: 065

REACTIONS (17)
  - APHASIA [None]
  - CHEST PAIN [None]
  - FATIGUE [None]
  - HAEMORRHAGIC TRANSFORMATION STROKE [None]
  - HEADACHE [None]
  - HEMIANOPIA [None]
  - HEMIPLEGIA [None]
  - HORNER'S SYNDROME [None]
  - INFLAMMATION [None]
  - ISCHAEMIC STROKE [None]
  - MYDRIASIS [None]
  - PROTEIN S DEFICIENCY [None]
  - PUPILS UNEQUAL [None]
  - RALES [None]
  - SENSORY LOSS [None]
  - SOMNOLENCE [None]
  - VIITH NERVE PARALYSIS [None]
